FAERS Safety Report 13459887 (Version 1)
Quarter: 2017Q2

REPORT INFORMATION
  Report Type: Spontaneous
  Country: US (occurrence: US)
  Receive Date: 20170420
  Receipt Date: 20170420
  Transmission Date: 20170830
  Serious: No
  Sender: FDA-Public Use
  Company Number: US-TRIS PHARMA, INC-2017TRISPO00004

PATIENT

DRUGS (4)
  1. DEXTROMETHORPHAN POLISTIREX [Suspect]
     Active Substance: DEXTROMETHORPHAN HYDROBROMIDE
     Dosage: 10 ML, BID
     Route: 065
     Dates: start: 201703, end: 20170307
  2. TYLENOL [Concomitant]
     Active Substance: ACETAMINOPHEN
     Indication: BODY TEMPERATURE
     Dosage: 2 TABLETS, PRN (EVERY 6 TO 8 HOURS)
     Route: 065
  3. MUCINEX [Concomitant]
     Active Substance: GUAIFENESIN
     Indication: SECRETION DISCHARGE
     Dosage: 1 DF, BID (ONE TABLET EVERY 12 HOURS)
     Route: 048
     Dates: start: 201703, end: 20170301
  4. DEXTROMETHORPHAN POLISTIREX [Suspect]
     Active Substance: DEXTROMETHORPHAN HYDROBROMIDE
     Indication: COUGH
     Dosage: UNK
     Route: 065

REACTIONS (6)
  - Chapped lips [None]
  - Lip swelling [None]
  - Lip pain [None]
  - Hypersensitivity [Not Recovered/Not Resolved]
  - Drug hypersensitivity [None]
  - Lip disorder [None]

NARRATIVE: CASE EVENT DATE: 20170308
